FAERS Safety Report 9548883 (Version 1)
Quarter: 2013Q3

REPORT INFORMATION
  Report Type: Spontaneous
  Country: US (occurrence: None)
  Receive Date: 20130923
  Receipt Date: 20130923
  Transmission Date: 20140515
  Serious: Yes (Life-Threatening, Disabling, Other)
  Sender: FDA-Public Use
  Company Number: None

PATIENT
  Age: 59 Year
  Sex: Female
  Weight: 52.16 kg

DRUGS (1)
  1. CHANTIX [Suspect]
     Indication: SMOKING CESSATION THERAPY
     Dosage: 1/2 PILL
     Route: 048
     Dates: start: 20131001, end: 20140301

REACTIONS (8)
  - Depression [None]
  - Suicidal ideation [None]
  - Nightmare [None]
  - Fatigue [None]
  - Middle insomnia [None]
  - Poor quality sleep [None]
  - Wrong technique in drug usage process [None]
  - Malaise [None]
